FAERS Safety Report 7516852-2 (Version None)
Quarter: 2011Q2

REPORT INFORMATION
  Report Type: 
  Country: None (occurrence: None)
  Receive Date: 20110526
  Receipt Date: 20110526
  Transmission Date: 20111010
  Serious: Yes (Hospitalization)
  Sender: FDA-Public Use
  Company Number: None

PATIENT
  Age: 60 Year
  Sex: Female
  Weight: 83.0083 kg

DRUGS (1)
  1. LEVAQUIN [Suspect]
     Indication: UROSEPSIS
     Dosage: 500MG DAILY IV DRIP
     Route: 041
     Dates: start: 20110517, end: 20110517

REACTIONS (1)
  - PRURITUS [None]
